FAERS Safety Report 7289252-0 (Version None)
Quarter: 2011Q1

REPORT INFORMATION
  Report Type: 
  Country: None (occurrence: None)
  Receive Date: 20110211
  Receipt Date: 20110203
  Transmission Date: 20110831
  Serious: Yes (Death, Other)
  Sender: FDA-Public Use
  Company Number: US-PURDUE-USA-2010-0056299

PATIENT
  Age: 47 Year
  Sex: Female

DRUGS (5)
  1. IBUPROFEN [Suspect]
     Indication: PRODUCT USED FOR UNKNOWN INDICATION
  2. MARIJUANA [Suspect]
     Indication: DRUG ABUSE
  3. COCAINE [Suspect]
     Indication: DRUG ABUSE
  4. OXYCODONE HCL [Suspect]
     Indication: DRUG ABUSE
  5. DARVON [Suspect]
     Indication: PRODUCT USED FOR UNKNOWN INDICATION

REACTIONS (2)
  - SUBSTANCE ABUSE [None]
  - STAB WOUND [None]
